FAERS Safety Report 7462866-0 (Version None)
Quarter: 2011Q2

REPORT INFORMATION
  Report Type: 
  Country: None (occurrence: None)
  Receive Date: 20110506
  Receipt Date: 20110422
  Transmission Date: 20111010
  Serious: Yes (Other)
  Sender: FDA-Public Use
  Company Number: US-JNJFOC-20110411589

PATIENT
  Sex: Female
  Weight: 119.3 kg

DRUGS (13)
  1. WELCHOL [Concomitant]
     Indication: BLOOD CHOLESTEROL
     Route: 048
  2. FENTANYL [Suspect]
     Dosage: NDC#50458-090-05
     Route: 062
  3. FENTANYL-100 [Suspect]
     Indication: PAIN
     Route: 062
  4. ULTRAM [Suspect]
     Indication: PAIN
     Dosage: AS NEEDED
     Route: 048
  5. FENTANYL [Suspect]
     Dosage: NDC#50458-092-05
     Route: 062
  6. FENTANYL [Suspect]
     Dosage: NDC#50458-090-05
     Route: 062
  7. GLYBURIDE [Concomitant]
     Indication: DIABETES MELLITUS
     Route: 048
  8. FENTANYL [Suspect]
     Indication: PAIN
     Route: 062
  9. FENTANYL [Suspect]
     Dosage: NDC#50458-092-05
     Route: 062
  10. NEURONTIN [Concomitant]
     Indication: NEUROPATHY PERIPHERAL
     Route: 048
  11. TRICOR [Concomitant]
     Indication: BLOOD CHOLESTEROL
     Route: 048
  12. LASIX [Concomitant]
     Indication: BLOOD PRESSURE
     Route: 048
  13. ALTACE [Concomitant]
     Indication: BLOOD PRESSURE
     Route: 048

REACTIONS (4)
  - ABASIA [None]
  - PAIN [None]
  - BLOOD GLUCOSE ABNORMAL [None]
  - DRUG INEFFECTIVE [None]
